FAERS Safety Report 4713272-0 (Version None)
Quarter: 2005Q3

REPORT INFORMATION
  Report Type: 
  Country: None (occurrence: None)
  Receive Date: 20050701
  Receipt Date: 20040622
  Transmission Date: 20060218
  Serious: Yes (Hospitalization, Other)
  Sender: FDA-Public Use
  Company Number: US-SHR-03-003139

PATIENT
  Age: 34 Year
  Sex: Female

DRUGS (2)
  1. YASMIN [Suspect]
     Indication: ORAL CONTRACEPTION
     Dosage: 1 TAB, 1X/DAY, ORAL
     Route: 048
     Dates: start: 20010821, end: 20021101
  2. PROZAC [Concomitant]

REACTIONS (1)
  - CEREBROVASCULAR ACCIDENT [None]
